FAERS Safety Report 25228795 (Version 1)
Quarter: 2025Q2

REPORT INFORMATION
  Report Type: Spontaneous
  Country: US (occurrence: US)
  Receive Date: 20250423
  Receipt Date: 20250423
  Transmission Date: 20250717
  Serious: Yes (Other)
  Sender: IMMUNOCORE
  Company Number: US-IMMUNOCORE, LTD-2025-IMC-003843

PATIENT
  Sex: Female

DRUGS (1)
  1. KIMMTRAK [Suspect]
     Active Substance: TEBENTAFUSP-TEBN
     Indication: Metastatic ocular melanoma

REACTIONS (2)
  - Malignant neoplasm progression [Unknown]
  - Contusion [Unknown]

NARRATIVE: CASE EVENT DATE: 20241001
